FAERS Safety Report 8200840-7 (Version None)
Quarter: 2012Q1

REPORT INFORMATION
  Report Type: 
  Country: None (occurrence: None)
  Receive Date: 20120312
  Receipt Date: 20120305
  Transmission Date: 20120608
  Serious: Yes (Life-Threatening, Other)
  Sender: FDA-Public Use
  Company Number: DE-ROXANE LABORATORIES, INC.-2012-RO-00783RO

PATIENT
  Age: 46 Year
  Sex: Female
  Weight: 55 kg

DRUGS (2)
  1. OPIPRAMOL [Suspect]
  2. CITALOPRAM HYDROBROMIDE [Suspect]
     Indication: MAJOR DEPRESSION

REACTIONS (4)
  - ELECTROCARDIOGRAM QT PROLONGED [None]
  - SUICIDAL IDEATION [None]
  - INTENTIONAL OVERDOSE [None]
  - TOXICITY TO VARIOUS AGENTS [None]
